FAERS Safety Report 8499429-4 (Version None)
Quarter: 2012Q3

REPORT INFORMATION
  Report Type: 
  Country: None (occurrence: None)
  Receive Date: 20120710
  Receipt Date: 20120702
  Transmission Date: 20120928
  Serious: Yes (Hospitalization, Other)
  Sender: FDA-Public Use
  Company Number: GB-JNJFOC-20120520750

PATIENT
  Age: 59 Year
  Sex: Female
  Weight: 81 kg

DRUGS (9)
  1. REMICADE [Suspect]
     Indication: COLITIS ULCERATIVE
     Route: 042
  2. DEXAMETHASONE [Suspect]
     Indication: HEADACHE
  3. DEXAMETHASONE [Suspect]
     Dosage: ^QDS^
     Dates: start: 20111126
  4. PENTASA [Concomitant]
     Indication: COLITIS ULCERATIVE
  5. CALCICHEW D3 [Concomitant]
     Indication: OSTEOPOROSIS
     Route: 048
     Dates: start: 20090101
  6. DEXAMETHASONE [Suspect]
     Dosage: ^QDS^
     Dates: start: 20111126
  7. DEXAMETHASONE [Suspect]
     Indication: VASCULITIS CEREBRAL
  8. DEXAMETHASONE [Suspect]
     Indication: CENTRAL NERVOUS SYSTEM LESION
  9. DEXAMETHASONE [Suspect]
     Dosage: ^QDS^
     Dates: start: 20111126

REACTIONS (9)
  - CENTRAL NERVOUS SYSTEM LESION [None]
  - RESPIRATORY MONILIASIS [None]
  - MUSCULAR WEAKNESS [None]
  - BLADDER DISORDER [None]
  - COLITIS ULCERATIVE [None]
  - SPINAL COMPRESSION FRACTURE [None]
  - BRONCHOPULMONARY ASPERGILLOSIS [None]
  - CEREBRAL HAEMORRHAGE [None]
  - PNEUMOTHORAX [None]
